FAERS Safety Report 7624531-6 (Version None)
Quarter: 2011Q3

REPORT INFORMATION
  Report Type: 
  Country: None (occurrence: None)
  Receive Date: 20110720
  Receipt Date: 20110714
  Transmission Date: 20111222
  Serious: Yes (Hospitalization)
  Sender: FDA-Public Use
  Company Number: JP-EISAI INC-E2090-01666-SPO-JP

PATIENT
  Sex: Female

DRUGS (8)
  1. ZONISAMIDE [Suspect]
     Indication: EPILEPSY
     Route: 048
     Dates: start: 20110512, end: 20110626
  2. MAGMITT [Concomitant]
     Dosage: UNKNOWN
  3. BONOTEO [Concomitant]
  4. UNASYN [Concomitant]
     Dosage: UNKNOWN
     Route: 042
  5. URSO 250 [Concomitant]
     Dosage: UNKNOWN
     Route: 048
  6. FAMOTIDINE [Concomitant]
     Dosage: UNKNOWN
  7. PREDNISOLONE [Concomitant]
     Dosage: UNKNOWN
  8. DEPAKENE [Concomitant]
     Dosage: UNKNOWN
     Route: 048

REACTIONS (1)
  - NEUTROPENIA [None]
